FAERS Safety Report 26133082 (Version 3)
Quarter: 2025Q4

REPORT INFORMATION
  Report Type: Spontaneous
  Country: US (occurrence: US)
  Receive Date: 20251209
  Receipt Date: 20251225
  Transmission Date: 20260117
  Serious: No
  Sender: JOHNSON AND JOHNSON
  Company Number: US-JNJFOC-20251211502

PATIENT
  Sex: Female

DRUGS (2)
  1. GUSELKUMAB [Suspect]
     Active Substance: GUSELKUMAB
     Indication: Product used for unknown indication
     Dosage: STRENGTH: 100.00 MG / 1.00 ML
  2. GUSELKUMAB [Suspect]
     Active Substance: GUSELKUMAB
     Dosage: STRENGTH: 100.00 MG / 1.00 ML

REACTIONS (2)
  - Product dose omission issue [Unknown]
  - Device deployment issue [Unknown]
